FAERS Safety Report 23142238 (Version 1)
Quarter: 2023Q4

REPORT INFORMATION
  Report Type: Spontaneous
  Country: US (occurrence: US)
  Receive Date: 20231103
  Receipt Date: 20231103
  Transmission Date: 20240109
  Serious: No
  Sender: FDA-Public Use
  Company Number: US-MYOVANT SCIENCES GMBH-2023MYSCI0900149

PATIENT
  Age: 69 Year
  Sex: Male

DRUGS (3)
  1. ORGOVYX [Suspect]
     Active Substance: RELUGOLIX
     Indication: Prostate cancer
     Dosage: 120 MILLIGRAM, QD
     Route: 048
     Dates: start: 20230801
  2. ADVIL                              /00044201/ [Concomitant]
     Indication: Discomfort
     Dosage: 2-4 PILLS EVERY MORNING
     Route: 048
  3. IMODIUM [Concomitant]
     Active Substance: LOPERAMIDE HYDROCHLORIDE
     Indication: Diarrhoea
     Dosage: 1-2 MG EVERY MORNING
     Route: 048

REACTIONS (13)
  - Hot flush [Unknown]
  - Loss of libido [Unknown]
  - Heart rate irregular [Unknown]
  - Irritability [Unknown]
  - Hypoaesthesia [Unknown]
  - Paraesthesia [Unknown]
  - Anger [Unknown]
  - Electrocardiogram QT prolonged [Unknown]
  - Palpitations [Unknown]
  - Pain in extremity [Unknown]
  - Arthralgia [Unknown]
  - Incorrect dose administered [Recovered/Resolved]
  - Product dose omission issue [Recovered/Resolved]

NARRATIVE: CASE EVENT DATE: 20230801
